FAERS Safety Report 8392087-9 (Version None)
Quarter: 2012Q2

REPORT INFORMATION
  Report Type: 
  Country: None (occurrence: None)
  Receive Date: 20120525
  Receipt Date: 20120525
  Transmission Date: 20120825
  Serious: Yes (Other)
  Sender: FDA-Public Use
  Company Number: None

PATIENT
  Age: 57 Year
  Sex: Female
  Weight: 79.8331 kg

DRUGS (2)
  1. FLUOXETINE [Suspect]
     Indication: SLEEP DISORDER
     Dosage: 1 DAILY PO
     Route: 048
     Dates: start: 20120519, end: 20120520
  2. FLUOXETINE [Suspect]
     Indication: MENOPAUSE
     Dosage: 1 DAILY PO
     Route: 048
     Dates: start: 20120519, end: 20120520

REACTIONS (3)
  - ABDOMINAL PAIN UPPER [None]
  - SEROTONIN SYNDROME [None]
  - DIARRHOEA [None]
